FAERS Safety Report 13977398 (Version 2)
Quarter: 2017Q4

REPORT INFORMATION
  Report Type: Spontaneous
  Country: US (occurrence: US)
  Receive Date: 20170915
  Receipt Date: 20171019
  Transmission Date: 20180321
  Serious: Yes (Death, Other)
  Sender: FDA-Public Use
  Company Number: US-JAZZ-2017-US-011759

PATIENT
  Sex: Female

DRUGS (36)
  1. ISOPTO ATROPIN [Concomitant]
     Indication: PRODUCT USED FOR UNKNOWN INDICATION
     Dosage: 1-2 DROPS UNDER TONGUE EVERY 2 HOURS AS NEEDED
     Route: 048
     Dates: start: 20170525
  2. FEMARA [Concomitant]
     Active Substance: LETROZOLE
     Indication: PRODUCT USED FOR UNKNOWN INDICATION
     Dosage: 2.5 MG, QD
     Route: 048
  3. PRIALT [Suspect]
     Active Substance: ZICONOTIDE ACETATE
     Dosage: .071?G, QH
     Route: 037
  4. ATIVAN [Concomitant]
     Active Substance: LORAZEPAM
     Indication: NAUSEA
  5. ZOLOFT [Concomitant]
     Active Substance: SERTRALINE HYDROCHLORIDE
     Indication: PRODUCT USED FOR UNKNOWN INDICATION
     Dosage: 50 MG, QD
  6. TYLENOL [Concomitant]
     Active Substance: ACETAMINOPHEN
     Indication: PAIN
     Dosage: 2 TABLETS EVERY 6 HOURS AS NEEDED
     Route: 048
  7. CENTRUM SILVER                     /02363801/ [Concomitant]
     Active Substance: MINERALS\VITAMINS
     Indication: PRODUCT USED FOR UNKNOWN INDICATION
     Dosage: 1 TABLET DAILY
     Route: 048
  8. ZOCOR [Concomitant]
     Active Substance: SIMVASTATIN
     Indication: PRODUCT USED FOR UNKNOWN INDICATION
     Dosage: 20 MG, QD
     Route: 048
  9. K-DUR [Concomitant]
     Active Substance: POTASSIUM CHLORIDE
     Indication: PRODUCT USED FOR UNKNOWN INDICATION
     Dosage: 20 MEQ, QD
     Route: 048
  10. CORTEF [Concomitant]
     Active Substance: HYDROCORTISONE
     Indication: PRODUCT USED FOR UNKNOWN INDICATION
     Dosage: 10 MG, TID BEFORE MEALS
     Route: 048
  11. PRIALT [Suspect]
     Active Substance: ZICONOTIDE ACETATE
     Indication: PAIN
     Dosage: UNK
     Route: 037
  12. TYLENOL [Concomitant]
     Active Substance: ACETAMINOPHEN
     Indication: PYREXIA
  13. VITAMIN D3 [Concomitant]
     Active Substance: CHOLECALCIFEROL
     Indication: PRODUCT USED FOR UNKNOWN INDICATION
     Dosage: 2000 U, QD
     Route: 048
  14. E-MYCIN [Concomitant]
     Active Substance: ERYTHROMYCIN
     Indication: PRODUCT USED FOR UNKNOWN INDICATION
     Dosage: 2 TABLET ONE HOUR BEFORE DENTAL PROCEDURE AND 1 TABLET AFTER DENTAL PROCEDURE
  15. COENZYME Q10 [Concomitant]
     Active Substance: UBIDECARENONE
     Indication: PRODUCT USED FOR UNKNOWN INDICATION
     Dosage: 200 MG, QD
     Route: 048
  16. ROXANOL [Concomitant]
     Active Substance: MORPHINE SULFATE
     Indication: PAIN
     Dosage: 5MG -20 MG EVERY 1 HOUR AS NEEDED
     Dates: start: 20170814
  17. LACTULOSE. [Concomitant]
     Active Substance: LACTULOSE
     Indication: CONSTIPATION
     Dosage: 30 ML DAILY
  18. KEPPRA [Concomitant]
     Active Substance: LEVETIRACETAM
     Indication: PRODUCT USED FOR UNKNOWN INDICATION
     Dosage: 7.5 ML EVERY 12 HOURS
     Route: 048
  19. ATARAX [Concomitant]
     Active Substance: HYDROXYZINE HYDROCHLORIDE
     Indication: PRODUCT USED FOR UNKNOWN INDICATION
     Dosage: 25 MG, BID
     Route: 048
  20. PRILOSEC [Concomitant]
     Active Substance: OMEPRAZOLE MAGNESIUM
     Indication: PRODUCT USED FOR UNKNOWN INDICATION
     Dosage: 40 MG, QD
     Route: 048
  21. MOTRIN [Concomitant]
     Active Substance: IBUPROFEN
     Indication: HEADACHE
     Dosage: 400 MG, TID AS NEEDED
     Dates: start: 20170807
  22. MOTRIN [Concomitant]
     Active Substance: IBUPROFEN
     Indication: PAIN
  23. SENOKOT [Concomitant]
     Active Substance: SENNOSIDES
     Indication: PRODUCT USED FOR UNKNOWN INDICATION
     Dosage: 8.6 MG, QD
     Route: 048
  24. HALDOL [Concomitant]
     Active Substance: HALOPERIDOL
     Indication: AGITATION
  25. HALDOL [Concomitant]
     Active Substance: HALOPERIDOL
     Indication: NAUSEA
  26. DECADRON [Concomitant]
     Active Substance: DEXAMETHASONE
     Indication: PRODUCT USED FOR UNKNOWN INDICATION
     Dosage: 4 MG, QD
     Route: 048
  27. MAGNESIUM [Concomitant]
     Active Substance: MAGNESIUM
     Indication: PRODUCT USED FOR UNKNOWN INDICATION
     Dosage: 40 MG, QD
     Route: 048
  28. CRANBERRY                          /01512301/ [Concomitant]
     Active Substance: CRANBERRY
     Indication: PRODUCT USED FOR UNKNOWN INDICATION
     Dosage: 1 TABLET DAILY
     Route: 048
  29. VITAMIN C [Concomitant]
     Active Substance: ASCORBIC ACID
     Indication: PRODUCT USED FOR UNKNOWN INDICATION
     Dosage: 500 MG, QD
     Route: 048
  30. ATIVAN [Concomitant]
     Active Substance: LORAZEPAM
     Indication: ANXIETY
     Dosage: DISSOLVE 1/2 TO 2 TABLETS UNDER TONGUE EVERY 4 HOURS AS NEEDED
     Route: 048
     Dates: start: 20170814
  31. ATIVAN [Concomitant]
     Active Substance: LORAZEPAM
     Indication: RESTLESSNESS
  32. GLYCOLAX [Concomitant]
     Active Substance: POLYETHYLENE GLYCOL 3350
     Indication: PRODUCT USED FOR UNKNOWN INDICATION
     Dosage: POLYETHLENE GLYCOL (GLYCOLAX, MIRALAX) PACKET
  33. LANTUS [Concomitant]
     Active Substance: INSULIN GLARGINE
     Indication: PRODUCT USED FOR UNKNOWN INDICATION
     Dosage: 35 UNITS EVERY MORNING 20 UNITS NIGHTLY
  34. HALDOL [Concomitant]
     Active Substance: HALOPERIDOL
     Indication: RESTLESSNESS
     Dosage: 1 MG BY MOUTH OR UNDER TONGUE EVERY 4 HOURS AS NEEDED
     Dates: start: 20170525
  35. NORVASC [Concomitant]
     Active Substance: AMLODIPINE BESYLATE
     Indication: PRODUCT USED FOR UNKNOWN INDICATION
     Dosage: 10 MG, QD
     Route: 048
  36. HUMALOG [Concomitant]
     Active Substance: INSULIN LISPRO
     Indication: PRODUCT USED FOR UNKNOWN INDICATION
     Dosage: IF 150-200 GIVE 3U, 201-250 GIVE 5 U, 251-300 GIVE 7 U, 301-350 GIVE 9U, 351-400 GIVE 11 UNITS SQ

REACTIONS (1)
  - Malignant neoplasm progression [Fatal]
